FAERS Safety Report 9028920 (Version 1)
Quarter: 2013Q1

REPORT INFORMATION
  Report Type: Spontaneous
  Country: JP (occurrence: JP)
  Receive Date: 20130124
  Receipt Date: 20130124
  Transmission Date: 20140127
  Serious: Yes (Hospitalization)
  Sender: FDA-Public Use
  Company Number: PHHY2013JP005727

PATIENT
  Age: 66 Year
  Sex: Female
  Weight: 40.2 kg

DRUGS (6)
  1. VALSARTAN [Suspect]
     Dosage: 40 UKN, ONE PER ONE DAY
     Route: 048
     Dates: end: 20101221
  2. PRAVASTATIN SODIUM [Suspect]
     Dosage: 5 UKN, ONE IN ONE DAY
     Route: 048
  3. DONEPEZIL HYDROCHLORIDE [Suspect]
     Dosage: 5 UKN, ONE IN ONE DAY
     Route: 048
  4. ADO-TRASTUZUMAB EMTANSINE [Suspect]
     Indication: BREAST CANCER
     Dosage: 3.6 MG/KG ONCE PER 3 WEEKS
     Route: 042
     Dates: start: 20101221
  5. MAGNESIUM OXIDE [Suspect]
     Dosage: SINGLE DOSE
     Route: 048
  6. SITAGLIPTIN PHOSPHATE [Suspect]
     Dosage: 25 UKN
     Route: 048

REACTIONS (3)
  - Malaise [Recovering/Resolving]
  - Decreased appetite [Recovering/Resolving]
  - Pyrexia [Unknown]
